FAERS Safety Report 23836109 (Version 1)
Quarter: 2024Q2

REPORT INFORMATION
  Report Type: Spontaneous
  Country: US (occurrence: US)
  Receive Date: 20240509
  Receipt Date: 20240509
  Transmission Date: 20240716
  Serious: Yes (Other)
  Sender: FDA-Public Use
  Company Number: US-MYLANLABS-2024M1039777

PATIENT
  Sex: Male

DRUGS (1)
  1. SILDENAFIL [Suspect]
     Active Substance: SILDENAFIL
     Indication: Product used for unknown indication
     Dosage: UNK
     Route: 065

REACTIONS (8)
  - Delirium [Unknown]
  - Seizure [Unknown]
  - Abnormal behaviour [Unknown]
  - Mydriasis [Unknown]
  - Incoherent [Unknown]
  - Opiates positive [Unknown]
  - Vomiting [Unknown]
  - Product formulation issue [Unknown]
